FAERS Safety Report 17930295 (Version 1)
Quarter: 2020Q2

REPORT INFORMATION
  Report Type: Report from Study
  Country: CO (occurrence: CO)
  Receive Date: 20200623
  Receipt Date: 20200623
  Transmission Date: 20200714
  Serious: Yes (Hospitalization, Other)
  Sender: FDA-Public Use
  Company Number: PHHY2019CO030921

PATIENT
  Age: 59 Year
  Sex: Female
  Weight: 72 kg

DRUGS (3)
  1. TAFINLAR [Suspect]
     Active Substance: DABRAFENIB MESYLATE
     Indication: METASTATIC MALIGNANT MELANOMA
     Dosage: 300 MG, QD (4 CAPSULES OF 75 MG)
     Route: 048
     Dates: start: 20190107
  2. MEKINIST [Suspect]
     Active Substance: TRAMETINIB DIMETHYL SULFOXIDE
     Indication: MALIGNANT MELANOMA
     Dosage: 2 MG, QD
     Route: 048
     Dates: start: 20190107
  3. TAFINLAR [Suspect]
     Active Substance: DABRAFENIB MESYLATE
     Dosage: 75 MG, Q12H
     Route: 048

REACTIONS (19)
  - Brain neoplasm [Unknown]
  - Rash [Unknown]
  - Coordination abnormal [Unknown]
  - Abdominal pain lower [Unknown]
  - Nausea [Unknown]
  - Vertebral lesion [Unknown]
  - Pyrexia [Unknown]
  - Inappropriate schedule of product administration [Unknown]
  - Gait disturbance [Unknown]
  - Haematuria [Unknown]
  - Chills [Unknown]
  - Malaise [Unknown]
  - Escherichia infection [Unknown]
  - Headache [Unknown]
  - Kidney infection [Unknown]
  - Pain [Unknown]
  - Metastases to spine [Unknown]
  - Discomfort [Unknown]
  - Aphasia [Unknown]

NARRATIVE: CASE EVENT DATE: 201904
